FAERS Safety Report 14946260 (Version 1)
Quarter: 2018Q2

REPORT INFORMATION
  Report Type: Spontaneous
  Country: US (occurrence: US)
  Receive Date: 20180529
  Receipt Date: 20180529
  Transmission Date: 20180711
  Serious: No
  Sender: FDA-Public Use
  Company Number: US-SA-2018SA142900

PATIENT
  Sex: Male

DRUGS (2)
  1. AUBAGIO [Suspect]
     Active Substance: TERIFLUNOMIDE
     Indication: MULTIPLE SCLEROSIS
     Dosage: 14 MG, QD
     Route: 048
  2. AMPYRA [Concomitant]
     Active Substance: DALFAMPRIDINE

REACTIONS (5)
  - Dizziness [Unknown]
  - Cold sweat [Unknown]
  - Somnolence [Unknown]
  - Hypertension [Unknown]
  - Chills [Unknown]
